FAERS Safety Report 11117154 (Version 3)
Quarter: 2015Q3

REPORT INFORMATION
  Report Type: Spontaneous
  Country: US (occurrence: US)
  Receive Date: 20150515
  Receipt Date: 20150717
  Transmission Date: 20151125
  Serious: Yes (Other)
  Sender: FDA-Public Use
  Company Number: US-PFIZER INC-2015162906

PATIENT
  Age: 77 Year
  Sex: Female

DRUGS (3)
  1. PREMARIN [Suspect]
     Active Substance: ESTROGENS, CONJUGATED
     Indication: CYSTITIS
  2. PREMARIN [Suspect]
     Active Substance: ESTROGENS, CONJUGATED
     Indication: VULVOVAGINAL DRYNESS
     Dosage: 0.5 G, UNK (3 TIMES A WEEK)
     Dates: start: 2009, end: 2015
  3. PROVERA [Suspect]
     Active Substance: MEDROXYPROGESTERONE ACETATE
     Indication: BLADDER DISORDER
     Dosage: 20 MG, ALTERNATE DAY (3 TIMES PER WEEK)
     Dates: start: 2009, end: 2015

REACTIONS (6)
  - Cystitis-like symptom [Unknown]
  - Pre-existing condition improved [Unknown]
  - Myocardial infarction [Unknown]
  - Therapeutic response unexpected [Unknown]
  - White blood cells urine [Unknown]
  - Product use issue [Unknown]

NARRATIVE: CASE EVENT DATE: 201501
